FAERS Safety Report 5130756-4 (Version None)
Quarter: 2006Q4

REPORT INFORMATION
  Report Type: 
  Country: None (occurrence: None)
  Receive Date: 20061019
  Receipt Date: 20061010
  Transmission Date: 20070319
  Serious: Yes (Disabling, Other)
  Sender: FDA-Public Use
  Company Number: DE-PURDUE-DEU_2006_0002523

PATIENT
  Sex: Female

DRUGS (2)
  1. OXYGESIC [Suspect]
     Indication: NEURALGIA
     Dosage: UNK, SEE TEXT
     Route: 048
  2. LYRICA [Concomitant]

REACTIONS (2)
  - GAIT DISTURBANCE [None]
  - INTRACRANIAL PRESSURE INCREASED [None]
